FAERS Safety Report 19430622 (Version 1)
Quarter: 2021Q2

REPORT INFORMATION
  Report Type: Spontaneous
  Country: US (occurrence: US)
  Receive Date: 20210618
  Receipt Date: 20210618
  Transmission Date: 20210717
  Serious: Yes (Hospitalization, Other)
  Sender: FDA-Public Use
  Company Number: US-AUROBINDO-AUR-APL-2021-024807

PATIENT
  Age: 18 Year
  Sex: Female

DRUGS (1)
  1. IBUPROFEN 200MG [Suspect]
     Active Substance: IBUPROFEN
     Indication: PRODUCT USED FOR UNKNOWN INDICATION
     Dosage: 600 DOSAGE FORM
     Route: 065

REACTIONS (5)
  - Hypotension [Recovering/Resolving]
  - Gastrointestinal haemorrhage [Unknown]
  - Intentional overdose [Unknown]
  - Acute kidney injury [Unknown]
  - Acidosis [Unknown]
